FAERS Safety Report 5112738-1 (Version None)
Quarter: 2006Q3

REPORT INFORMATION
  Report Type: 
  Country: None (occurrence: None)
  Receive Date: 20060922
  Receipt Date: 20060913
  Transmission Date: 20061208
  Serious: Yes (Other)
  Sender: FDA-Public Use
  Company Number: GB-JNJFOC-20060904065

PATIENT
  Sex: Female

DRUGS (2)
  1. TOPAMAX [Suspect]
     Indication: EPILEPSY
     Route: 065
  2. GLUCOCORTICOIDS [Concomitant]
     Indication: ADDISON'S DISEASE

REACTIONS (3)
  - ADRENAL INSUFFICIENCY [None]
  - BLOOD CORTICOTROPHIN INCREASED [None]
  - DRUG CLEARANCE INCREASED [None]
